FAERS Safety Report 4485565-6 (Version None)
Quarter: 2004Q4

REPORT INFORMATION
  Report Type: 
  Country: None (occurrence: None)
  Receive Date: 20041026
  Receipt Date: 20041019
  Transmission Date: 20050328
  Serious: Yes (Disabling)
  Sender: FDA-Public Use
  Company Number: US-MERCK-0410USA02894

PATIENT
  Age: 48 Year
  Sex: Male

DRUGS (3)
  1. ZOCOR [Suspect]
     Indication: BLOOD CHOLESTEROL INCREASED
     Route: 048
     Dates: start: 20040901, end: 20041016
  2. INSULIN [Concomitant]
     Route: 065
  3. COZAAR [Concomitant]
     Route: 048

REACTIONS (3)
  - ARTHRALGIA [None]
  - MUSCLE DISORDER [None]
  - MUSCLE TIGHTNESS [None]
